FAERS Safety Report 7754703-1 (Version None)
Quarter: 2011Q3

REPORT INFORMATION
  Report Type: 
  Country: None (occurrence: None)
  Receive Date: 20110915
  Receipt Date: 20110901
  Transmission Date: 20111222
  Serious: Yes (Other)
  Sender: FDA-Public Use
  Company Number: PHHY2011BR23931

PATIENT
  Sex: Male

DRUGS (5)
  1. EXFORGE [Suspect]
     Dosage: 320/5 MG, 1 TABLETS A DAY
     Route: 048
     Dates: start: 20110301
  2. METOPROLOL SUCCINATE [Concomitant]
     Dosage: 100 MG, ONE TABLET A DAY
  3. EPREX [Concomitant]
     Indication: RENAL DISORDER
     Dosage: ONE APPLICATION ON ALTERNATED DAYS
     Route: 042
  4. EXFORGE [Suspect]
     Indication: HYPERTENSION
     Dosage: 320/5 MG, 2 TABLETS A DAY
     Route: 048
     Dates: start: 20101101
  5. INSULIN [Concomitant]
     Dosage: 12 UNITS A DAY

REACTIONS (1)
  - ARTERIAL OCCLUSIVE DISEASE [None]
